FAERS Safety Report 5636114-8 (Version None)
Quarter: 2008Q1

REPORT INFORMATION
  Report Type: 
  Country: None (occurrence: None)
  Receive Date: 20080220
  Receipt Date: 20080220
  Transmission Date: 20080703
  Serious: Yes (Life-Threatening, Hospitalization)
  Sender: FDA-Public Use
  Company Number: None

PATIENT
  Sex: Female

DRUGS (1)
  1. CELEBREX [Suspect]
     Indication: ARTHRITIS
     Dosage: 200 MG BID PO
     Route: 048
     Dates: start: 20070209, end: 20080102

REACTIONS (5)
  - CONTUSION [None]
  - FALL [None]
  - MENTAL STATUS CHANGES [None]
  - SKIN LACERATION [None]
  - SUBDURAL HAEMATOMA [None]
